FAERS Safety Report 5526187-5 (Version None)
Quarter: 2007Q4

REPORT INFORMATION
  Report Type: 
  Country: None (occurrence: None)
  Receive Date: 20071120
  Receipt Date: 20071105
  Transmission Date: 20080405
  Serious: Yes (Hospitalization, Other)
  Sender: FDA-Public Use
  Company Number: DSU-2007-00850

PATIENT
  Age: 16 Year
  Sex: Female
  Weight: 56.9 kg

DRUGS (4)
  1. WELCHOL [Suspect]
     Indication: HYPERCHOLESTEROLAEMIA
     Dosage: (BID), PER ORAL ; (BID), PER ORAL ; (BID), PER ORAL
     Route: 048
     Dates: start: 20070419, end: 20070517
  2. WELCHOL [Suspect]
     Indication: HYPERCHOLESTEROLAEMIA
     Dosage: (BID), PER ORAL ; (BID), PER ORAL ; (BID), PER ORAL
     Route: 048
     Dates: start: 20070517, end: 20070712
  3. WELCHOL [Suspect]
     Indication: HYPERCHOLESTEROLAEMIA
     Dosage: (BID), PER ORAL ; (BID), PER ORAL ; (BID), PER ORAL
     Route: 048
     Dates: start: 20070712
  4. ESTRADIOL [Concomitant]

REACTIONS (3)
  - LABORATORY TEST INTERFERENCE [None]
  - PLATELET AGGREGATION [None]
  - THROMBOCYTOPENIA [None]
